FAERS Safety Report 7957610-4 (Version None)
Quarter: 2011Q4

REPORT INFORMATION
  Report Type: 
  Country: None (occurrence: None)
  Receive Date: 20111201
  Receipt Date: 20111118
  Transmission Date: 20120403
  Serious: Yes (Death, Hospitalization)
  Sender: FDA-Public Use
  Company Number: 1000025742

PATIENT
  Age: 83 Year
  Sex: Male

DRUGS (1)
  1. ESCITALOPRAM OXALATE [Suspect]
     Indication: GENERAL PHYSICAL HEALTH DETERIORATION
     Dosage: 40 MG (40 MG, 1 IN 1 D), ORAL
     Route: 048
     Dates: start: 20111001

REACTIONS (3)
  - PULMONARY EMBOLISM [None]
  - URINARY RETENTION [None]
  - PSYCHIATRIC DECOMPENSATION [None]
